FAERS Safety Report 9703834 (Version 1)
Quarter: 2013Q4

REPORT INFORMATION
  Report Type: Spontaneous
  Country: IL (occurrence: IL)
  Receive Date: 20131122
  Receipt Date: 20131122
  Transmission Date: 20140711
  Serious: Yes (Other)
  Sender: FDA-Public Use
  Company Number: IL-VERTEX PHARMACEUTICALS INC-2013-011250

PATIENT
  Age: 53 Year
  Sex: Female

DRUGS (3)
  1. INCIVO [Suspect]
     Indication: HEPATITIS C
     Route: 048
  2. INTERFERONS [Concomitant]
     Indication: HEPATITIS C
     Dosage: UNK
  3. RIBAVIRIN [Concomitant]
     Indication: HEPATITIS C
     Dosage: UNK

REACTIONS (1)
  - Rash [Recovered/Resolved]
